FAERS Safety Report 8431174-3 (Version None)
Quarter: 2012Q2

REPORT INFORMATION
  Report Type: 
  Country: None (occurrence: None)
  Receive Date: 20120612
  Receipt Date: 20120606
  Transmission Date: 20120825
  Serious: Yes (Hospitalization, Other)
  Sender: FDA-Public Use
  Company Number: PHHY2012HR048815

PATIENT
  Age: 20 Year
  Sex: Male
  Weight: 90 kg

DRUGS (9)
  1. ZOLPIDEM TARTRATE [Concomitant]
     Dosage: 10 MG, UNK
  2. RISPERIDONE [Suspect]
     Dosage: 50 MG, QW2
     Route: 030
  3. SERTRALINE HYDROCHLORIDE [Concomitant]
     Dosage: 50 MG, BID
     Dates: start: 20050101
  4. CLOZAPINE [Suspect]
     Indication: SCHIZOPHRENIA
     Dosage: 25 MG, (MAX 250 MG PER DAY)
     Route: 048
     Dates: start: 20080620, end: 20111104
  5. RISPERIDONE [Suspect]
     Dosage: UNK UKN, UNK
     Route: 030
     Dates: start: 20080512, end: 20111024
  6. AKINETON [Concomitant]
     Dosage: 2 MG, DAILY
  7. RISPERIDONE [Suspect]
     Dosage: UNK UKN, UNK
     Route: 048
     Dates: start: 20080424, end: 20111104
  8. NORMABEL (DIAZEPAM) [Concomitant]
     Dosage: 5 MG, TID
  9. RISPERIDONE [Suspect]
     Indication: SCHIZOPHRENIA
     Dosage: 50 MG, QW3
     Route: 030

REACTIONS (7)
  - STIFF PERSON SYNDROME [None]
  - SUPRAVENTRICULAR EXTRASYSTOLES [None]
  - MYOCLONUS [None]
  - PARKINSONISM [None]
  - TREMOR [None]
  - DYSTONIA [None]
  - ANTIPSYCHOTIC DRUG LEVEL ABOVE THERAPEUTIC [None]
